FAERS Safety Report 20741824 (Version 4)
Quarter: 2022Q4

REPORT INFORMATION
  Report Type: Spontaneous
  Country: JP (occurrence: JP)
  Receive Date: 20220423
  Receipt Date: 20221107
  Transmission Date: 20230112
  Serious: Yes (Other)
  Sender: FDA-Public Use
  Company Number: JP-ONO-2022JP010332

PATIENT
  Age: 75 Year
  Sex: Male

DRUGS (4)
  1. OPDIVO [Suspect]
     Active Substance: NIVOLUMAB
     Indication: Gastric cancer
     Dosage: 360 MG
     Route: 041
     Dates: start: 20220105
  2. CAPECITABINE [Concomitant]
     Active Substance: CAPECITABINE
     Indication: Gastric cancer
     Dosage: UNK
     Route: 065
     Dates: start: 20220105
  3. CAPECITABINE [Concomitant]
     Active Substance: CAPECITABINE
  4. OXALIPLATIN [Concomitant]
     Active Substance: OXALIPLATIN
     Indication: Gastric cancer
     Dosage: UNK
     Route: 065
     Dates: start: 20220105

REACTIONS (2)
  - Thrombocytopenia [Recovered/Resolved]
  - Tumour marker increased [Recovered/Resolved]

NARRATIVE: CASE EVENT DATE: 20220201
